FAERS Safety Report 6510051-9 (Version None)
Quarter: 2009Q4

REPORT INFORMATION
  Report Type: 
  Country: None (occurrence: None)
  Receive Date: 20091217
  Receipt Date: 20091211
  Transmission Date: 20100525
  Serious: Yes (Death)
  Sender: FDA-Public Use
  Company Number: DSM-2009-01942

PATIENT
  Age: 87 Year
  Sex: Male
  Weight: 91 kg

DRUGS (4)
  1. OLMESARTAN MEDOXOMIL/AMLODIPINE/HYDROCHLOROTHIAZIDE [Suspect]
     Indication: ESSENTIAL HYPERTENSION
     Dosage: 40 MG / 10 MG (1 IN 1 D), ORAL
     Route: 048
     Dates: start: 20090710
  2. FELODIL (FELODIPINE) (10 MILLIGRAM) (FELODIPINE) [Concomitant]
  3. TRIATEC (RAMIPRIL) (10 MILLIGRAM) (RAMIPRIL) [Concomitant]
  4. XATRAL (ALFUZOSIN HYDROCHLORIDE) (ALFUZOSIN HYDROCHLORIDE) [Concomitant]

REACTIONS (1)
  - SUDDEN CARDIAC DEATH [None]
